FAERS Safety Report 9688411 (Version 1)
Quarter: 2013Q4

REPORT INFORMATION
  Report Type: Spontaneous
  Country: GR (occurrence: GR)
  Receive Date: 20131114
  Receipt Date: 20131114
  Transmission Date: 20140711
  Serious: Yes (Life-Threatening)
  Sender: FDA-Public Use
  Company Number: GR-UCBSA-102919

PATIENT
  Age: 28 Year
  Sex: Male
  Weight: 120 kg

DRUGS (5)
  1. VIMPAT [Suspect]
     Indication: PARTIAL SEIZURES
     Route: 048
     Dates: start: 20121020, end: 20121104
  2. VIMPAT [Suspect]
     Indication: PARTIAL SEIZURES
     Route: 048
     Dates: start: 201210, end: 201210
  3. TRILEPTAL [Concomitant]
     Dosage: DOSE : 600 MG
  4. FRISIUM [Concomitant]
     Dosage: DOSE: 20 MG
  5. TOPAMAC [Concomitant]

REACTIONS (1)
  - Acute psychosis [Recovered/Resolved]
